FAERS Safety Report 9660729 (Version 1)
Quarter: 2013Q4

REPORT INFORMATION
  Report Type: Spontaneous
  Country: FR (occurrence: FR)
  Receive Date: 20131031
  Receipt Date: 20131031
  Transmission Date: 20140711
  Serious: Yes (Death, Hospitalization)
  Sender: FDA-Public Use
  Company Number: FR-PFIZER INC-2013309462

PATIENT
  Age: 51 Year
  Sex: Male

DRUGS (22)
  1. TAZOCILLINE [Suspect]
     Indication: BACTERAEMIA
     Dosage: UNK
     Dates: start: 20130906, end: 20130913
  2. INEXIUM 20 MG [Suspect]
     Dosage: UNK
     Route: 048
     Dates: start: 20130910, end: 20130919
  3. TIENAM [Suspect]
     Dosage: UNK
     Dates: start: 20130916, end: 20130919
  4. AXEPIM [Concomitant]
     Indication: BACTERAEMIA
     Dosage: UNK
     Dates: start: 20130913, end: 20130916
  5. AZACTAM [Concomitant]
     Indication: BACTERAEMIA
     Dosage: UNK
     Dates: start: 20130918
  6. FLAGYL [Concomitant]
     Indication: BACTERAEMIA
     Dosage: UNK
     Dates: start: 20130918
  7. VANCOMYCIN [Concomitant]
     Indication: BACTERAEMIA
     Dosage: UNK
     Dates: start: 20130907, end: 20130916
  8. ZYVOXID [Concomitant]
     Indication: BACTERAEMIA
     Dosage: UNK
     Dates: start: 20130916
  9. VFEND [Concomitant]
     Indication: BACTERAEMIA
     Dosage: UNK
     Dates: start: 20130916
  10. ZOVIRAX [Concomitant]
     Dosage: UNK
     Dates: start: 20130902
  11. CICLOSPORIN [Concomitant]
     Dosage: UNK
     Dates: start: 20130905, end: 20130915
  12. SOLU-MEDROL [Concomitant]
     Dosage: UNK
     Dates: start: 20130915
  13. AMBISOME [Concomitant]
     Indication: BACTERAEMIA
     Dosage: UNK
     Dates: start: 20130911, end: 20130914
  14. HEPARIN [Concomitant]
     Dosage: UNK
     Dates: start: 20130831
  15. BACTRIM [Concomitant]
  16. SPECIAFOLDINE [Concomitant]
  17. MOTILIUM [Concomitant]
  18. NEURONTIN [Concomitant]
  19. TOPALGIC [Concomitant]
  20. LOXEN [Concomitant]
  21. EFFEXOR [Concomitant]
  22. STILNOX [Concomitant]

REACTIONS (2)
  - Renal failure [Fatal]
  - Toxic skin eruption [Not Recovered/Not Resolved]
